FAERS Safety Report 5020504-0 (Version None)
Quarter: 2006Q2

REPORT INFORMATION
  Report Type: 
  Country: None (occurrence: None)
  Receive Date: 20060601
  Receipt Date: 20060519
  Transmission Date: 20061013
  Serious: Yes (Hospitalization)
  Sender: FDA-Public Use
  Company Number: 2006056721

PATIENT
  Age: 61 Year
  Sex: Female

DRUGS (3)
  1. LIPITOR [Suspect]
     Indication: HYPERLIPIDAEMIA
     Dosage: 10 MG (10 MG, 1 IN 1 D), ORAL
     Route: 048
     Dates: start: 20020418, end: 20060417
  2. NORVASC [Suspect]
     Indication: ILL-DEFINED DISORDER
     Dosage: ORAL
     Route: 048
  3. HYPOCA (BARNIDIPINE) [Concomitant]

REACTIONS (5)
  - APLASTIC ANAEMIA [None]
  - ASTHENIA [None]
  - DIZZINESS [None]
  - MYELODYSPLASTIC SYNDROME [None]
  - NAUSEA [None]
